FAERS Safety Report 6940901-3 (Version None)
Quarter: 2010Q3

REPORT INFORMATION
  Report Type: 
  Country: None (occurrence: None)
  Receive Date: 20100825
  Receipt Date: 20100818
  Transmission Date: 20110219
  Serious: Yes (Hospitalization)
  Sender: FDA-Public Use
  Company Number: A0774064A

PATIENT
  Age: 39 Year
  Sex: Male

DRUGS (2)
  1. AVANDIA [Suspect]
     Route: 048
     Dates: start: 20000217, end: 20070117
  2. AVANDAMET [Suspect]
     Route: 048
     Dates: start: 20040804, end: 20050523

REACTIONS (1)
  - MYOCARDIAL INFARCTION [None]
